FAERS Safety Report 9407424 (Version 1)
Quarter: 2013Q3

REPORT INFORMATION
  Report Type: Spontaneous
  Country: US (occurrence: None)
  Receive Date: 20130717
  Receipt Date: 20130717
  Transmission Date: 20140515
  Serious: Yes (Death, Hospitalization)
  Sender: FDA-Public Use
  Company Number: None

PATIENT
  Age: 48 Year
  Sex: Female

DRUGS (1)
  1. PROPYLTHIOURACIL [Suspect]
     Indication: HYPERTHYROIDISM
     Route: 048
     Dates: start: 20130227, end: 20130527

REACTIONS (7)
  - Jaundice [None]
  - Malaise [None]
  - Tachypnoea [None]
  - Tachycardia [None]
  - Hepatic failure [None]
  - Nausea [None]
  - Vomiting [None]
